FAERS Safety Report 10597772 (Version 1)
Quarter: 2014Q4

REPORT INFORMATION
  Report Type: Spontaneous
  Country: US (occurrence: US)
  Receive Date: 20141121
  Receipt Date: 20141121
  Transmission Date: 20150529
  Serious: Yes (Death)
  Sender: FDA-Public Use
  Company Number: US-JNJFOC-20141108998

PATIENT
  Age: 15 Month
  Sex: Male

DRUGS (1)
  1. FENTANYL TRANSDERMAL SYSTEM [Suspect]
     Active Substance: FENTANYL
     Indication: ACCIDENTAL EXPOSURE TO PRODUCT
     Route: 062

REACTIONS (6)
  - Toxicity to various agents [Fatal]
  - Pulmonary congestion [Fatal]
  - Aspiration [Fatal]
  - Pulmonary oedema [Fatal]
  - Unresponsive to stimuli [Fatal]
  - Accidental exposure to product by child [Fatal]
